FAERS Safety Report 6459718-1 (Version None)
Quarter: 2009Q4

REPORT INFORMATION
  Report Type: 
  Country: None (occurrence: None)
  Receive Date: 20091128
  Receipt Date: 20090921
  Transmission Date: 20100525
  Serious: No
  Sender: FDA-Public Use
  Company Number: US-AMGEN-KDL365629

PATIENT
  Sex: Male
  Weight: 102.2 kg

DRUGS (7)
  1. ENBREL [Suspect]
     Indication: PSORIASIS
  2. ENBREL [Suspect]
     Indication: PSORIATIC ARTHROPATHY
  3. METHOTREXATE [Suspect]
     Route: 048
  4. HUMIRA [Suspect]
     Route: 058
     Dates: start: 20060101
  5. ROSUVASTATIN [Concomitant]
  6. EZETIMIBE [Concomitant]
  7. UNSPECIFIED ANTIHYPERTENSIVE AGENT [Concomitant]

REACTIONS (1)
  - HEPATIC ENZYME INCREASED [None]
